FAERS Safety Report 9441029 (Version 3)
Quarter: 2013Q4

REPORT INFORMATION
  Report Type: Spontaneous
  Country: US (occurrence: US)
  Receive Date: 20130801
  Receipt Date: 20131029
  Transmission Date: 20140711
  Serious: Yes (Other)
  Sender: FDA-Public Use
  Company Number: US-RRD-13-00005

PATIENT
  Sex: Male

DRUGS (2)
  1. DESOXYN [Suspect]
     Indication: ATTENTION DEFICIT/HYPERACTIVITY DISORDER
     Dosage: 20 MG (5 MG,4 IN 1 D)
     Route: 048
     Dates: start: 200001, end: 201108
  2. LEVOTHYROXINE [Concomitant]

REACTIONS (11)
  - Dry mouth [None]
  - Tooth abscess [None]
  - Tooth loss [None]
  - Dental caries [None]
  - Mastication disorder [None]
  - Dysphagia [None]
  - Abscess bacterial [None]
  - Bone graft [None]
  - Unevaluable event [None]
  - Malaise [None]
  - Dry mouth [None]
